FAERS Safety Report 6163162-4 (Version None)
Quarter: 2009Q2

REPORT INFORMATION
  Report Type: 
  Country: None (occurrence: None)
  Receive Date: 20090414
  Receipt Date: 20090408
  Transmission Date: 20091009
  Serious: Yes (Hospitalization)
  Sender: FDA-Public Use
  Company Number: 8044693

PATIENT
  Age: 55 Year
  Sex: Female

DRUGS (4)
  1. KEPPRA [Suspect]
     Indication: CONVULSION
     Dosage: 1000 MG /D IV
     Route: 042
     Dates: start: 20090101
  2. ABACAVIR [Concomitant]
  3. LAMIVUDINE [Concomitant]
  4. RALTEGRAVIR [Concomitant]

REACTIONS (1)
  - LOSS OF CONSCIOUSNESS [None]
